FAERS Safety Report 14893099 (Version 1)
Quarter: 2018Q2

REPORT INFORMATION
  Report Type: Spontaneous
  Country: US (occurrence: US)
  Receive Date: 20180514
  Receipt Date: 20180514
  Transmission Date: 20180711
  Serious: Yes (Other)
  Sender: FDA-Public Use
  Company Number: US-BAYER-2018-087466

PATIENT
  Sex: Female

DRUGS (2)
  1. MIRENA [Suspect]
     Active Substance: LEVONORGESTREL
     Dosage: 20 MCG/24HR, CONT
     Route: 015
     Dates: start: 201705
  2. MIRENA [Suspect]
     Active Substance: LEVONORGESTREL

REACTIONS (7)
  - Abdominal pain lower [None]
  - Malaise [None]
  - Drug ineffective [None]
  - Ectopic pregnancy with contraceptive device [None]
  - Pain [None]
  - Stress [None]
  - Haemorrhage in pregnancy [None]

NARRATIVE: CASE EVENT DATE: 20180329
